FAERS Safety Report 6116486-0 (Version None)
Quarter: 2009Q1

REPORT INFORMATION
  Report Type: 
  Country: None (occurrence: None)
  Receive Date: 20090314
  Receipt Date: 20081212
  Transmission Date: 20090719
  Serious: No
  Sender: FDA-Public Use
  Company Number: US-ABBOTT-08P-163-0493057-00

PATIENT
  Sex: Female
  Weight: 90.8 kg

DRUGS (5)
  1. HUMIRA [Suspect]
     Indication: PSORIATIC ARTHROPATHY
     Dates: start: 20081001
  2. LISINOPRIL [Concomitant]
     Indication: BLOOD PRESSURE
     Dates: start: 20070101
  3. HYDROCHLOROTHIAZIDE [Concomitant]
     Indication: BLOOD PRESSURE
     Dates: start: 20070101
  4. HYDROCHLOROTHIAZIDE [Concomitant]
     Dates: start: 20081205
  5. ATENOLOL [Concomitant]
     Indication: BLOOD PRESSURE
     Dates: start: 20081208

REACTIONS (1)
  - HEADACHE [None]
